FAERS Safety Report 6411929-7 (Version None)
Quarter: 2009Q4

REPORT INFORMATION
  Report Type: 
  Country: None (occurrence: None)
  Receive Date: 20091023
  Receipt Date: 20091013
  Transmission Date: 20100525
  Serious: Yes (Hospitalization)
  Sender: FDA-Public Use
  Company Number: US-JNJFOC-20091004923

PATIENT
  Sex: Female
  Weight: 54.89 kg

DRUGS (8)
  1. REMICADE [Suspect]
     Route: 042
     Dates: start: 20080201, end: 20090810
  2. REMICADE [Suspect]
     Route: 042
     Dates: start: 20080201, end: 20090810
  3. REMICADE [Suspect]
     Route: 042
     Dates: start: 20080201, end: 20090810
  4. REMICADE [Suspect]
     Route: 042
     Dates: start: 20080201, end: 20090810
  5. REMICADE [Suspect]
     Route: 042
     Dates: start: 20080201, end: 20090810
  6. REMICADE [Suspect]
     Route: 042
     Dates: start: 20080201, end: 20090810
  7. REMICADE [Suspect]
     Route: 042
     Dates: start: 20080201, end: 20090810
  8. REMICADE [Suspect]
     Indication: COLITIS ULCERATIVE
     Route: 042
     Dates: start: 20080201, end: 20090810

REACTIONS (2)
  - GASTRIC DISORDER [None]
  - IDIOPATHIC THROMBOCYTOPENIC PURPURA [None]
